FAERS Safety Report 4602285-5 (Version None)
Quarter: 2005Q2

REPORT INFORMATION
  Report Type: 
  Country: None (occurrence: None)
  Receive Date: 20050201
  Receipt Date: 20040413
  Transmission Date: 20051028
  Serious: Yes (Other)
  Sender: FDA-Public Use
  Company Number: 200417605BWH

PATIENT

DRUGS (2)
  1. AVELOX [Suspect]
     Indication: ABSCESS
  2. AVELOX [Suspect]
     Indication: CELLULITIS

REACTIONS (1)
  - TENDON RUPTURE [None]
